FAERS Safety Report 9384906 (Version 2)
Quarter: 2013Q3

REPORT INFORMATION
  Report Type: Spontaneous
  Country: US (occurrence: US)
  Receive Date: 20130705
  Receipt Date: 20130801
  Transmission Date: 20140515
  Serious: No
  Sender: FDA-Public Use
  Company Number: US-PFIZER INC-2013197293

PATIENT
  Age: 65 Year
  Sex: Female

DRUGS (4)
  1. LYRICA [Suspect]
     Indication: FIBROMYALGIA
     Dosage: 75 MG, 2X/DAY (BID)
     Route: 048
     Dates: end: 20130703
  2. NORVASC [Suspect]
     Dosage: UNK
  3. ACCUPRIL [Suspect]
     Dosage: UNK
  4. NEURONTIN [Suspect]
     Dosage: UNK

REACTIONS (7)
  - Feeling abnormal [Unknown]
  - Oedema [Recovered/Resolved]
  - Swelling [Recovered/Resolved]
  - Irritability [Recovered/Resolved]
  - Nightmare [Recovered/Resolved]
  - Drug ineffective [Recovered/Resolved]
  - Insomnia [Recovered/Resolved]
